FAERS Safety Report 5766650-5 (Version None)
Quarter: 2008Q2

REPORT INFORMATION
  Report Type: 
  Country: None (occurrence: None)
  Receive Date: 20080610
  Receipt Date: 20080610
  Transmission Date: 20081010
  Serious: Yes (Other)
  Sender: FDA-Public Use
  Company Number: None

PATIENT
  Age: 64 Year
  Sex: Female
  Weight: 106 kg

DRUGS (1)
  1. VICODIN [Suspect]
     Indication: FLANK PAIN
     Dosage: PRN 2 DOSES, 4 HOURS APART

REACTIONS (3)
  - DOCUMENTED HYPERSENSITIVITY TO ADMINISTERED DRUG [None]
  - DYSPHAGIA [None]
  - THROAT TIGHTNESS [None]
